FAERS Safety Report 4337522-8 (Version None)
Quarter: 2004Q2

REPORT INFORMATION
  Report Type: 
  Country: None (occurrence: None)
  Receive Date: 20040413
  Receipt Date: 20040406
  Transmission Date: 20050107
  Serious: Yes (Other)
  Sender: FDA-Public Use
  Company Number: US-GLAXOSMITHKLINE-A0506089A

PATIENT

DRUGS (1)
  1. PAXIL [Suspect]
     Indication: DEPRESSION
     Route: 048

REACTIONS (10)
  - ANGER [None]
  - ANHEDONIA [None]
  - CRYING [None]
  - HALLUCINATION [None]
  - ILL-DEFINED DISORDER [None]
  - INTENTIONAL SELF-INJURY [None]
  - MUSCLE TWITCHING [None]
  - NIGHTMARE [None]
  - SUICIDAL IDEATION [None]
  - WEIGHT INCREASED [None]
